FAERS Safety Report 5990396-1 (Version None)
Quarter: 2008Q4

REPORT INFORMATION
  Report Type: 
  Country: None (occurrence: None)
  Receive Date: 20081209
  Receipt Date: 20081124
  Transmission Date: 20090506
  Serious: Yes (Other)
  Sender: FDA-Public Use
  Company Number: 2008S1019037

PATIENT
  Age: 58 Year
  Sex: Female
  Weight: 60 kg

DRUGS (6)
  1. ALENDRONIC ACID (ALENDRONIC ACID) [Suspect]
     Indication: OSTEOPOROSIS
     Dosage: 70 MC; WEEKLY; ORAL
     Route: 048
     Dates: end: 20080905
  2. ADCAL-D3 [Concomitant]
  3. CAPASAL [Concomitant]
  4. DOSULEPIN [Concomitant]
  5. EXEMESTANE [Concomitant]
  6. STRONTIUM RANELATE [Concomitant]

REACTIONS (3)
  - BLISTER [None]
  - MOUTH ULCERATION [None]
  - VAGINAL MUCOSAL BLISTERING [None]
